FAERS Safety Report 18024336 (Version 14)
Quarter: 2023Q1

REPORT INFORMATION
  Report Type: Spontaneous
  Country: US (occurrence: US)
  Receive Date: 20200715
  Receipt Date: 20230110
  Transmission Date: 20230418
  Serious: Yes (Other)
  Sender: FDA-Public Use
  Company Number: US-PFIZER INC-2020268882

PATIENT
  Age: 57 Year
  Sex: Female
  Weight: 71 kg

DRUGS (2)
  1. PREMARIN [Suspect]
     Active Substance: ESTROGENS, CONJUGATED
     Indication: Vulvovaginal dryness
     Dosage: 0.5 G, 2X/WEEK, (0.5 GRAMS INTRA-VAGINAL APPLICATION 2 TIMES WEEKLY AT BEDTIME)
     Route: 067
     Dates: start: 2000
  2. PREMARIN [Suspect]
     Active Substance: ESTROGENS, CONJUGATED
     Dosage: 0.5 G, 2X/WEEK

REACTIONS (6)
  - Vulval haemorrhage [Recovered/Resolved]
  - Vulvovaginal dryness [Recovered/Resolved]
  - Vulvovaginal burning sensation [Recovered/Resolved]
  - Intentional product use issue [Unknown]
  - Product dispensing error [Unknown]
  - Contraindicated product administered [Unknown]

NARRATIVE: CASE EVENT DATE: 20000101
